FAERS Safety Report 7179283-3 (Version None)
Quarter: 2010Q4

REPORT INFORMATION
  Report Type: 
  Country: None (occurrence: None)
  Receive Date: 20101221
  Receipt Date: 20101214
  Transmission Date: 20110411
  Serious: Yes (Death, Life-Threatening, Hospitalization)
  Sender: FDA-Public Use
  Company Number: KR-MPIJNJ-2010-06214

PATIENT

DRUGS (5)
  1. VELCADE [Suspect]
     Indication: MULTIPLE MYELOMA
     Dosage: 1.3 MG/M2, UNK
     Route: 042
     Dates: start: 20100831, end: 20100903
  2. VELCADE [Suspect]
     Dosage: 1 MG/M2, UNK
     Route: 042
     Dates: start: 20100907, end: 20100924
  3. VELCADE [Suspect]
     Dosage: 1.3 MG/M2, UNK
     Route: 042
     Dates: start: 20100928, end: 20101022
  4. DEXAMETHASONE [Concomitant]
     Indication: MULTIPLE MYELOMA
     Dosage: 40 MG, UNK
     Route: 042
     Dates: start: 20100831
  5. DEXAMETHASONE [Concomitant]
     Dosage: 20 MG, UNK
     Route: 048
     Dates: start: 20100901

REACTIONS (3)
  - OESOPHAGEAL ULCER HAEMORRHAGE [None]
  - PERIPHERAL SENSORY NEUROPATHY [None]
  - PNEUMONIA [None]
